FAERS Safety Report 8102883-0 (Version None)
Quarter: 2012Q1

REPORT INFORMATION
  Report Type: 
  Country: None (occurrence: None)
  Receive Date: 20120201
  Receipt Date: 20120120
  Transmission Date: 20120608
  Serious: Yes (Other)
  Sender: FDA-Public Use
  Company Number: RO-ELI_LILLY_AND_COMPANY-RO201111007435

PATIENT
  Sex: Male
  Weight: 59 kg

DRUGS (3)
  1. ZYPREXA [Suspect]
     Indication: SCHIZOPHRENIA, PARANOID TYPE
     Dosage: 20 MG, UNK
     Dates: end: 20100601
  2. OLANZAPINE [Suspect]
     Indication: SCHIZOPHRENIA, PARANOID TYPE
     Dosage: 300 MG, OTHER
     Route: 030
     Dates: start: 20100613
  3. DIAZEPAM [Concomitant]
     Dosage: 10 MG, UNK
     Route: 048

REACTIONS (2)
  - SEDATION [None]
  - DIZZINESS [None]
